FAERS Safety Report 9862970 (Version 4)
Quarter: 2014Q4

REPORT INFORMATION
  Report Type: Spontaneous
  Country: US (occurrence: US)
  Receive Date: 20140203
  Receipt Date: 20141120
  Transmission Date: 20150529
  Serious: Yes (Other)
  Sender: FDA-Public Use
  Company Number: US-BAYER-2014-015003

PATIENT
  Age: 27 Year
  Sex: Female
  Weight: 56.69 kg

DRUGS (3)
  1. MIRENA [Suspect]
     Active Substance: LEVONORGESTREL
     Indication: MENORRHAGIA
  2. FLUOXETINE [Concomitant]
     Active Substance: FLUOXETINE\FLUOXETINE HYDROCHLORIDE
  3. MIRENA [Suspect]
     Active Substance: LEVONORGESTREL
     Indication: CONTRACEPTION
     Dosage: 20 MCG/24HR, CONT
     Route: 015
     Dates: start: 20080220, end: 20080324

REACTIONS (12)
  - Emotional distress [None]
  - Depression [None]
  - Anxiety [None]
  - Genital haemorrhage [None]
  - Uterine perforation [None]
  - Medical device complication [None]
  - Injury [None]
  - Internal injury [None]
  - Medical device discomfort [None]
  - Device dislocation [None]
  - Pain [None]
  - Fear [None]
